FAERS Safety Report 26068219 (Version 4)
Quarter: 2025Q4

REPORT INFORMATION
  Report Type: Spontaneous
  Country: JP (occurrence: JP)
  Receive Date: 20251120
  Receipt Date: 20251210
  Transmission Date: 20260117
  Serious: Yes (Hospitalization)
  Sender: SANOFI AVENTIS
  Company Number: JP-SA-2025SA342583

PATIENT
  Age: 11 Month
  Sex: Male

DRUGS (1)
  1. BEYFORTUS [Suspect]
     Active Substance: NIRSEVIMAB-ALIP
     Indication: Prophylaxis
     Dosage: 50 MG, 1X
     Route: 030
     Dates: start: 20250521, end: 20250521

REACTIONS (2)
  - Respiratory syncytial virus infection [Recovering/Resolving]
  - Therapeutic response decreased [Recovering/Resolving]

NARRATIVE: CASE EVENT DATE: 20251020
